FAERS Safety Report 11492131 (Version 1)
Quarter: 2015Q3

REPORT INFORMATION
  Report Type: Spontaneous
  Country: BR (occurrence: BR)
  Receive Date: 20150910
  Receipt Date: 20150910
  Transmission Date: 20151125
  Serious: Yes (Other)
  Sender: FDA-Public Use
  Company Number: PHHY2015BR106867

PATIENT
  Age: 65 Year
  Sex: Female
  Weight: 88 kg

DRUGS (3)
  1. SIMVASTATIN. [Concomitant]
     Active Substance: SIMVASTATIN
     Indication: PRODUCT USED FOR UNKNOWN INDICATION
     Dosage: 20 MG, UNK
     Route: 065
  2. ATENOLOL SANDOZ [Suspect]
     Active Substance: ATENOLOL
     Indication: HYPERTENSION
     Dosage: 25 MG, BID
     Route: 048
  3. LOSARTAN. [Concomitant]
     Active Substance: LOSARTAN
     Indication: PRODUCT USED FOR UNKNOWN INDICATION
     Dosage: 1 MG, QD
     Route: 065

REACTIONS (5)
  - Bronchitis [Recovered/Resolved]
  - Condition aggravated [Recovered/Resolved]
  - Influenza [Recovered/Resolved]
  - Hypertension [Recovered/Resolved]
  - Cough [Recovered/Resolved]

NARRATIVE: CASE EVENT DATE: 201505
